FAERS Safety Report 9331272 (Version 1)
Quarter: 2013Q2

REPORT INFORMATION
  Report Type: Spontaneous
  Country: JP (occurrence: None)
  Receive Date: 20130531
  Receipt Date: 20130531
  Transmission Date: 20140414
  Serious: Yes (Hospitalization)
  Sender: FDA-Public Use
  Company Number: ACET20130013

PATIENT
  Age: 25 Year
  Sex: Female

DRUGS (3)
  1. Q-PAP TABLETS 325MG (PARACETAMOL) (TABLETS) [Suspect]
     Route: 048
     Dates: start: 201111, end: 201111
  2. LEVOFLOXACIN [Suspect]
     Route: 048
     Dates: start: 201111, end: 20111109
  3. AMOXICILLIN [Suspect]
     Dates: start: 201111, end: 20111102

REACTIONS (13)
  - Rash maculo-papular [None]
  - Pharyngitis [None]
  - Urticaria [None]
  - Arthralgia [None]
  - Lymphadenopathy [None]
  - Aspartate aminotransferase increased [None]
  - Alanine aminotransferase increased [None]
  - Blood lactate dehydrogenase increased [None]
  - Serum ferritin increased [None]
  - Hepatosplenomegaly [None]
  - Mycoplasma test positive [None]
  - Gamma-glutamyltransferase increased [None]
  - Lymphocyte stimulation test positive [None]
